FAERS Safety Report 6612453-9 (Version None)
Quarter: 2010Q1

REPORT INFORMATION
  Report Type: 
  Country: None (occurrence: None)
  Receive Date: 20100303
  Receipt Date: 20100226
  Transmission Date: 20100710
  Serious: Yes (Death, Hospitalization, Other)
  Sender: FDA-Public Use
  Company Number: PHHY2010JP08677

PATIENT
  Sex: Male
  Weight: 50 kg

DRUGS (10)
  1. ZOMETA [Suspect]
     Indication: METASTASES TO BONE
     Dosage: 4 MG, UNK
     Route: 042
     Dates: start: 20090708, end: 20090708
  2. OMEPRAL [Concomitant]
     Indication: GASTRODUODENAL ULCER
     Dosage: 20 MG, UNK
     Dates: start: 20090626
  3. CALBLOCK [Concomitant]
     Indication: HYPERTENSION
     Dosage: 16 MG, UNK
     Route: 048
     Dates: start: 20090626
  4. LENDORMIN [Concomitant]
     Indication: INSOMNIA
     Dosage: 0.25 MG, UNK
     Route: 048
     Dates: start: 20090626
  5. HARNAL [Concomitant]
     Indication: BENIGN PROSTATIC HYPERPLASIA
     Dosage: 0.2 MG, UNK
     Route: 048
     Dates: start: 20090626
  6. FERROMIA [Concomitant]
     Indication: IRON DEFICIENCY ANAEMIA
     Dosage: 100 MG, UNK
     Route: 048
     Dates: start: 20090626
  7. MUCOSTA [Concomitant]
     Indication: GASTRODUODENAL ULCER
     Dosage: 300 MG, UNK
     Route: 048
     Dates: start: 20090626
  8. HYPEN [Concomitant]
     Indication: METASTASES TO BONE
     Dosage: 400 MG, UNK
     Route: 048
     Dates: start: 20090226
  9. DECADRON [Concomitant]
     Indication: LUNG NEOPLASM MALIGNANT
     Dosage: 2 MG, UNK
     Route: 048
  10. DUROTEP [Concomitant]
     Indication: LUNG NEOPLASM MALIGNANT
     Dosage: 2.1 MG, UNK
     Route: 062
     Dates: start: 20090701

REACTIONS (14)
  - ASPARTATE AMINOTRANSFERASE INCREASED [None]
  - BLOOD ALKALINE PHOSPHATASE INCREASED [None]
  - BLOOD CREATININE INCREASED [None]
  - BLOOD LACTATE DEHYDROGENASE INCREASED [None]
  - BLOOD POTASSIUM INCREASED [None]
  - BLOOD PRESSURE DECREASED [None]
  - BLOOD UREA INCREASED [None]
  - FEELING HOT [None]
  - MALIGNANT NEOPLASM PROGRESSION [None]
  - OSTEONECROSIS [None]
  - PLATELET COUNT DECREASED [None]
  - PURULENT DISCHARGE [None]
  - SWELLING [None]
  - WHITE BLOOD CELL COUNT DECREASED [None]
